FAERS Safety Report 7152392-0 (Version None)
Quarter: 2010Q4

REPORT INFORMATION
  Report Type: 
  Country: None (occurrence: None)
  Receive Date: 20101209
  Receipt Date: 20101209
  Transmission Date: 20110411
  Serious: Yes (Disabling)
  Sender: FDA-Public Use
  Company Number: None

PATIENT
  Age: 86 Year
  Sex: Female
  Weight: 52.1637 kg

DRUGS (2)
  1. CITALOPRAM HYDROBROMIDE [Suspect]
     Dosage: 1 TABLET 1X A DAY
     Dates: start: 20100826, end: 20100920
  2. CITALOPRAM HYDROBROMIDE [Suspect]
     Dosage: 1 TABLET 1X A DAY
     Dates: start: 20100619

REACTIONS (3)
  - AGITATION [None]
  - HALLUCINATION, AUDITORY [None]
  - MIDDLE INSOMNIA [None]
